FAERS Safety Report 9481769 (Version 1)
Quarter: 2013Q3

REPORT INFORMATION
  Report Type: Spontaneous
  Country: CA (occurrence: CA)
  Receive Date: 20130828
  Receipt Date: 20130828
  Transmission Date: 20140515
  Serious: Yes (Other)
  Sender: FDA-Public Use
  Company Number: CA-AMGEN-KDL227104

PATIENT
  Age: 52 Year
  Sex: Male

DRUGS (5)
  1. ENBREL [Suspect]
     Indication: PSORIATIC ARTHROPATHY
     Dosage: 50 MG, QWK
     Route: 058
     Dates: start: 20070518
  2. PANTOLOC [Concomitant]
  3. PREDNISONE [Concomitant]
  4. ACTONEL [Concomitant]
  5. LORAZEPAM [Concomitant]

REACTIONS (7)
  - Pharyngeal oedema [Unknown]
  - Paraesthesia oral [Unknown]
  - Dysphagia [Unknown]
  - Migraine [Unknown]
  - Hypoaesthesia [Unknown]
  - Injection site reaction [Not Recovered/Not Resolved]
  - Pruritus [Unknown]
